FAERS Safety Report 20466823 (Version 2)
Quarter: 2022Q1

REPORT INFORMATION
  Report Type: Report from Study
  Country: CA (occurrence: CA)
  Receive Date: 20220214
  Receipt Date: 20220321
  Transmission Date: 20220423
  Serious: Yes (Other)
  Sender: FDA-Public Use
  Company Number: CA-ABBVIE-22K-028-4274610-00

PATIENT
  Sex: Female

DRUGS (1)
  1. HUMIRA [Suspect]
     Active Substance: ADALIMUMAB
     Indication: Colitis ulcerative
     Route: 058
     Dates: start: 20210125

REACTIONS (7)
  - Ileostomy [Unknown]
  - Vaginal fistula [Unknown]
  - Pyoderma gangrenosum [Unknown]
  - Scar excision [Unknown]
  - Intestinal anastomosis [Unknown]
  - Injection site pain [Unknown]
  - Arthritis [Unknown]
